FAERS Safety Report 7258606-0 (Version None)
Quarter: 2011Q1

REPORT INFORMATION
  Report Type: 
  Country: None (occurrence: None)
  Receive Date: 20110129
  Receipt Date: 20100502
  Transmission Date: 20110831
  Serious: No
  Sender: FDA-Public Use
  Company Number: US-ABBOTT-09P-163-0557496-00

PATIENT
  Sex: Female
  Weight: 59.02 kg

DRUGS (6)
  1. PREVACID [Concomitant]
     Indication: CROHN'S DISEASE
     Route: 048
  2. CIPRO [Concomitant]
  3. HUMIRA [Suspect]
     Indication: CROHN'S DISEASE
     Route: 058
     Dates: start: 20090115
  4. LORATADINE [Concomitant]
     Indication: SEASONAL ALLERGY
     Route: 048
  5. SUDAFED 12 HOUR [Concomitant]
     Indication: SEASONAL ALLERGY
  6. CIPRO [Concomitant]
     Indication: ANAL FISTULA
     Route: 048
     Dates: start: 20070101, end: 20081101

REACTIONS (1)
  - INJECTION SITE PAIN [None]
